FAERS Safety Report 4793748-0 (Version None)
Quarter: 2005Q4

REPORT INFORMATION
  Report Type: 
  Country: None (occurrence: None)
  Receive Date: 20051011
  Receipt Date: 20051003
  Transmission Date: 20060501
  Serious: Yes (Hospitalization)
  Sender: FDA-Public Use
  Company Number: GB-JNJFOC-20051000135

PATIENT
  Age: 63 Year
  Sex: Male
  Weight: 80.9 kg

DRUGS (6)
  1. REMICADE [Suspect]
     Indication: RHEUMATOID ARTHRITIS
     Route: 042
  2. AZATHIOPRINE [Concomitant]
     Indication: RHEUMATOID ARTHRITIS
     Route: 048
  3. WARFARIN SODIUM [Concomitant]
     Route: 048
  4. DIGOXIN [Concomitant]
     Route: 048
  5. FRUSEMIDE [Concomitant]
     Route: 048
  6. PREDNISOLONE [Concomitant]
     Route: 048

REACTIONS (4)
  - ABDOMINAL PAIN [None]
  - LISTERIA SEPSIS [None]
  - PYREXIA [None]
  - VOMITING [None]
